FAERS Safety Report 18404285 (Version 2)
Quarter: 2020Q4

REPORT INFORMATION
  Report Type: Spontaneous
  Country: US (occurrence: US)
  Receive Date: 20201020
  Receipt Date: 20201030
  Transmission Date: 20210114
  Serious: No
  Sender: FDA-Public Use
  Company Number: US-GW PHARMA-202010USGW03557

PATIENT

DRUGS (3)
  1. EPIDIOLEX [Suspect]
     Active Substance: CANNABIDIOL
     Indication: EPILEPSY
     Dosage: 250 MILLIGRAM, BID (RECOMMENDED TO SPACE MEDICATIONS FROM EACH OTHER FOR ABOUT 30-45 MINUTES)
     Route: 048
     Dates: start: 20190523
  2. CLONIDINE. [Suspect]
     Active Substance: CLONIDINE
     Indication: PRODUCT USED FOR UNKNOWN INDICATION
     Dosage: UNK (RECOMMENDED TO SPACE MEDICATIONS FROM EACH OTHER FOR ABOUT 30-45 MINUTES)
     Route: 065
  3. VALPROIC ACID. [Suspect]
     Active Substance: VALPROIC ACID
     Indication: PRODUCT USED FOR UNKNOWN INDICATION
     Dosage: UNK (RECOMMENDED TO SPACE MEDICATIONS FROM EACH OTHER FOR ABOUT 30-45 MINUTES)
     Route: 065

REACTIONS (2)
  - Vomiting [Unknown]
  - Incorrect dose administered [Unknown]

NARRATIVE: CASE EVENT DATE: 20201004
